FAERS Safety Report 14799041 (Version 1)
Quarter: 2018Q2

REPORT INFORMATION
  Report Type: Spontaneous
  Country: JP (occurrence: JP)
  Receive Date: 20180424
  Receipt Date: 20180424
  Transmission Date: 20180711
  Serious: Yes (Death)
  Sender: FDA-Public Use
  Company Number: JP-SUCAMPO PHARMACEUTICALS INC.-SPI201800414

PATIENT
  Age: 8 Decade
  Sex: Male

DRUGS (8)
  1. UNKONWN [Concomitant]
  2. UNKONWN [Concomitant]
  3. URSO [Concomitant]
     Active Substance: URSODIOL
  4. UNKONWN [Concomitant]
  5. UNKONWN [Concomitant]
  6. MEMARY [Concomitant]
     Active Substance: MEMANTINE HYDROCHLORIDE
  7. AMITIZA [Suspect]
     Active Substance: LUBIPROSTONE
     Dosage: 24 MCG, UNK
     Route: 048
     Dates: start: 20170505, end: 20170514
  8. ELIQUIS [Concomitant]
     Active Substance: APIXABAN

REACTIONS (1)
  - Acute generalised exanthematous pustulosis [Fatal]

NARRATIVE: CASE EVENT DATE: 20170512
